FAERS Safety Report 6219243-X (Version None)
Quarter: 2009Q2

REPORT INFORMATION
  Report Type: 
  Country: None (occurrence: None)
  Receive Date: 20090605
  Receipt Date: 20090605
  Transmission Date: 20091009
  Serious: Yes (Other)
  Sender: FDA-Public Use
  Company Number: None

PATIENT
  Age: 55 Year
  Sex: Female
  Weight: 55.7924 kg

DRUGS (1)
  1. ACTONEL [Suspect]
     Indication: OSTEOPENIA
     Dosage: ONE TABLET ONE TIME PER WK
     Dates: start: 20060101, end: 20080101

REACTIONS (3)
  - BARRETT'S OESOPHAGUS [None]
  - COUGH [None]
  - GASTRIC DISORDER [None]
